FAERS Safety Report 16260675 (Version 1)
Quarter: 2019Q2

REPORT INFORMATION
  Report Type: Spontaneous
  Country: US (occurrence: US)
  Receive Date: 20190327
  Receipt Date: 20190327
  Transmission Date: 20190711
  Serious: No
  Sender: FDA-Public Use
  Company Number: None

PATIENT
  Age: 54 Year
  Sex: Female

DRUGS (1)
  1. COSENTYX [Suspect]
     Active Substance: SECUKINUMAB
     Dosage: ?          OTHER
     Route: 058
     Dates: start: 20180116

REACTIONS (4)
  - Lacrimation increased [None]
  - Seasonal allergy [None]
  - Eye pruritus [None]
  - Eye swelling [None]

NARRATIVE: CASE EVENT DATE: 20190327
